FAERS Safety Report 6898858-X (Version None)
Quarter: 2010Q3

REPORT INFORMATION
  Report Type: 
  Country: None (occurrence: None)
  Receive Date: 20100802
  Receipt Date: 20071223
  Transmission Date: 20110219
  Serious: No
  Sender: FDA-Public Use
  Company Number: US-PFIZER INC-2007108041

PATIENT
  Age: 38 Year
  Sex: Female
  Weight: 71.67 kg

DRUGS (4)
  1. LYRICA [Suspect]
     Indication: FIBROMYALGIA
     Dates: start: 20071001
  2. CYMBALTA [Concomitant]
  3. LEVOTHYROXINE SODIUM [Concomitant]
  4. ORAL CONTRACEPTIVE NOS [Concomitant]

REACTIONS (1)
  - WEIGHT INCREASED [None]
